FAERS Safety Report 26069833 (Version 1)
Quarter: 2025Q4

REPORT INFORMATION
  Report Type: Spontaneous
  Country: US (occurrence: US)
  Receive Date: 20251120
  Receipt Date: 20251120
  Transmission Date: 20260118
  Serious: No
  Sender: CATALYST PHARMA
  Company Number: US-CATALYST PHARMACEUTICALS-US-CATA-25-01208

PATIENT
  Sex: Male
  Weight: 22.449 kg

DRUGS (8)
  1. AGAMREE [Suspect]
     Active Substance: VAMOROLONE
     Indication: Duchenne muscular dystrophy
     Dosage: 3 ML DAILY
     Route: 048
     Dates: start: 20250620
  2. MULTIVITAMIN GUMMY BEARS [Concomitant]
     Indication: Hypovitaminosis
     Dosage: 1 DAILY
     Route: 065
  3. FLONASE [Concomitant]
     Active Substance: FLUTICASONE PROPIONATE
     Indication: Nasal congestion
     Dosage: 1 SPRAY AT BEDTIME
     Route: 045
  4. CHILDRENS TYLENOL [Concomitant]
     Active Substance: ACETAMINOPHEN
     Indication: Pyrexia
     Dosage: 5 ML AS NEEDED
     Route: 065
  5. CHILDRENS TYLENOL [Concomitant]
     Active Substance: ACETAMINOPHEN
     Indication: Pain
  6. IBUPROFEN [Concomitant]
     Active Substance: IBUPROFEN
     Indication: Pyrexia
     Dosage: 5 ML AS NEEDED
     Route: 065
  7. IBUPROFEN [Concomitant]
     Active Substance: IBUPROFEN
     Indication: Pain
  8. PREDNISOLONE [Concomitant]
     Active Substance: PREDNISOLONE
     Indication: Duchenne muscular dystrophy
     Dosage: 5 ML DAILY
     Route: 048

REACTIONS (2)
  - Tooth discolouration [Not Recovered/Not Resolved]
  - Muscular weakness [Not Recovered/Not Resolved]

NARRATIVE: CASE EVENT DATE: 20250101
